FAERS Safety Report 7619578-X (Version None)
Quarter: 2011Q3

REPORT INFORMATION
  Report Type: 
  Country: None (occurrence: None)
  Receive Date: 20110719
  Receipt Date: 20110706
  Transmission Date: 20111222
  Serious: Yes (Hospitalization)
  Sender: FDA-Public Use
  Company Number: DE-UCBSA-036636

PATIENT
  Age: 46 Year
  Sex: Male

DRUGS (3)
  1. VALPROIC ACID [Concomitant]
     Dosage: UNKNOWN DOSE
  2. KEPPRA [Suspect]
     Dosage: 500 MG,
     Dates: start: 20110301
  3. LAMICTAL [Concomitant]
     Dosage: UNKNOWN DOSE

REACTIONS (2)
  - INFLAMMATION [None]
  - POLYURIA [None]
